FAERS Safety Report 19256422 (Version 2)
Quarter: 2021Q2

REPORT INFORMATION
  Report Type: Report from Study
  Country: JP (occurrence: JP)
  Receive Date: 20210514
  Receipt Date: 20210622
  Transmission Date: 20210717
  Serious: Yes (Hospitalization, Other)
  Sender: FDA-Public Use
  Company Number: JP-ALXN-A202017023

PATIENT
  Age: 67 Year
  Sex: Female
  Weight: 52 kg

DRUGS (8)
  1. WARFARIN [Concomitant]
     Active Substance: WARFARIN
     Indication: SPLENIC VEIN THROMBOSIS
  2. ULTOMIRIS [Suspect]
     Active Substance: RAVULIZUMAB-CWVZ
     Dosage: 3000 MG, Q8W
     Route: 042
     Dates: start: 20191010
  3. WARFARIN [Concomitant]
     Active Substance: WARFARIN
     Indication: HEPATIC VEIN THROMBOSIS
     Dosage: 3 MG, QD
     Route: 048
  4. NEXIUM [Concomitant]
     Active Substance: ESOMEPRAZOLE MAGNESIUM
     Indication: PROPHYLAXIS
     Dosage: 20 MG, QD
     Route: 048
  5. ULTOMIRIS [Suspect]
     Active Substance: RAVULIZUMAB-CWVZ
     Indication: PAROXYSMAL NOCTURNAL HAEMOGLOBINURIA
     Dosage: 2400 MG, SINGLE
     Route: 042
     Dates: start: 20190926, end: 20190926
  6. EDARAVONE [Concomitant]
     Active Substance: EDARAVONE
     Indication: PAROXYSMAL NOCTURNAL HAEMOGLOBINURIA
     Dosage: 30 MG, BID
     Route: 065
     Dates: start: 20190926, end: 20191009
  7. HEPARIN [Concomitant]
     Active Substance: HEPARIN SODIUM
     Indication: PAROXYSMAL NOCTURNAL HAEMOGLOBINURIA
     Dosage: 10000 IU,24H
     Route: 065
     Dates: start: 20190909, end: 20190921
  8. WARFARIN [Concomitant]
     Active Substance: WARFARIN
     Indication: PAROXYSMAL NOCTURNAL HAEMOGLOBINURIA
     Dosage: 3 MG, QD
     Route: 048
     Dates: start: 20190922

REACTIONS (1)
  - Acute myocardial infarction [Recovering/Resolving]

NARRATIVE: CASE EVENT DATE: 20190927
